FAERS Safety Report 4981957-7 (Version None)
Quarter: 2006Q2

REPORT INFORMATION
  Report Type: 
  Country: None (occurrence: None)
  Receive Date: 20060425
  Receipt Date: 20050921
  Transmission Date: 20061013
  Serious: Yes (Hospitalization, Other)
  Sender: FDA-Public Use
  Company Number: US-MERCK-0509USA03422

PATIENT
  Age: 52 Year
  Sex: Male
  Weight: 86 kg

DRUGS (1)
  1. VIOXX [Suspect]
     Indication: BACK PAIN
     Route: 048
     Dates: start: 20000101, end: 20030101

REACTIONS (7)
  - DEEP VEIN THROMBOSIS [None]
  - ELECTROCARDIOGRAM ABNORMAL [None]
  - OEDEMA PERIPHERAL [None]
  - PLEURAL EFFUSION [None]
  - PLEURITIC PAIN [None]
  - PULMONARY EMBOLISM [None]
  - THROMBOSIS [None]
